FAERS Safety Report 6645700-8 (Version None)
Quarter: 2010Q1

REPORT INFORMATION
  Report Type: 
  Country: None (occurrence: None)
  Receive Date: 20100323
  Receipt Date: 20100310
  Transmission Date: 20100710
  Serious: Yes (Death)
  Sender: FDA-Public Use
  Company Number: BR-SANOFI-AVENTIS-2010SA014672

PATIENT
  Sex: Male

DRUGS (2)
  1. OPTIPEN [Suspect]
  2. LANTUS [Suspect]

REACTIONS (1)
  - NEOPLASM MALIGNANT [None]
